FAERS Safety Report 5224092-5 (Version None)
Quarter: 2007Q1

REPORT INFORMATION
  Report Type: 
  Country: None (occurrence: None)
  Receive Date: 20070130
  Receipt Date: 20070122
  Transmission Date: 20070707
  Serious: Yes (Hospitalization)
  Sender: FDA-Public Use
  Company Number: US-JNJFOC-20060702123

PATIENT
  Sex: Female
  Weight: 88.45 kg

DRUGS (8)
  1. REMICADE [Suspect]
     Route: 042
  2. REMICADE [Suspect]
     Indication: RHEUMATOID ARTHRITIS
     Route: 042
  3. PROZAC [Concomitant]
  4. ATIVAN [Concomitant]
  5. LOTRELL [Concomitant]
  6. TOPREM [Concomitant]
  7. CALCIULUS [Concomitant]
  8. GLUCOSIUM [Concomitant]

REACTIONS (8)
  - BLOOD GLUCOSE INCREASED [None]
  - CHILLS [None]
  - DECREASED APPETITE [None]
  - INFUSION RELATED REACTION [None]
  - PANCREATITIS [None]
  - PARAESTHESIA [None]
  - PYREXIA [None]
  - VOMITING [None]
